FAERS Safety Report 7526752-X (Version None)
Quarter: 2011Q2

REPORT INFORMATION
  Report Type: 
  Country: None (occurrence: None)
  Receive Date: 20110606
  Receipt Date: 20110412
  Transmission Date: 20111010
  Serious: Yes (Hospitalization)
  Sender: FDA-Public Use
  Company Number: JP-CELGENEUS-087-21660-11041970

PATIENT
  Sex: Female
  Weight: 43 kg

DRUGS (9)
  1. SOLDEM 3 [Concomitant]
     Route: 051
  2. PYDOXAL [Concomitant]
     Route: 048
     Dates: start: 20101110
  3. FENTANYL [Concomitant]
     Route: 065
     Dates: start: 20101110, end: 20101207
  4. NEUROTROPIN [Concomitant]
     Route: 048
     Dates: start: 20101110
  5. LYRICA [Concomitant]
     Route: 065
     Dates: start: 20101209
  6. ABRAXANE [Suspect]
     Indication: BREAST CANCER METASTATIC
     Dosage: 380 MILLIGRAM
     Route: 050
     Dates: start: 20101110, end: 20101110
  7. CELECOXIB [Concomitant]
     Route: 048
     Dates: start: 20101110
  8. METHYCOBAL [Concomitant]
     Route: 048
     Dates: start: 20101110
  9. FENTANYL [Concomitant]
     Route: 061
     Dates: start: 20101110

REACTIONS (8)
  - MALAISE [None]
  - DECREASED APPETITE [None]
  - BLOOD ALKALINE PHOSPHATASE INCREASED [None]
  - ALANINE AMINOTRANSFERASE INCREASED [None]
  - INAPPROPRIATE SCHEDULE OF DRUG ADMINISTRATION [None]
  - PERIPHERAL SENSORY NEUROPATHY [None]
  - GAMMA-GLUTAMYLTRANSFERASE INCREASED [None]
  - ASPARTATE AMINOTRANSFERASE INCREASED [None]
